FAERS Safety Report 20192722 (Version 3)
Quarter: 2021Q4

REPORT INFORMATION
  Report Type: Spontaneous
  Country: US (occurrence: US)
  Receive Date: 20211216
  Receipt Date: 20211227
  Transmission Date: 20220303
  Serious: Yes (Death, Other)
  Sender: FDA-Public Use
  Company Number: US-009507513-2112USA004999

PATIENT
  Age: 63 Year
  Sex: Male

DRUGS (5)
  1. KEYTRUDA [Suspect]
     Active Substance: PEMBROLIZUMAB
     Indication: Lung carcinoma cell type unspecified stage IV
     Dosage: UNK, Q3W
     Route: 042
     Dates: start: 201905, end: 202106
  2. ALIMTA [Suspect]
     Active Substance: PEMETREXED DISODIUM
     Indication: Lung carcinoma cell type unspecified stage IV
     Dosage: UNK
     Dates: start: 201905, end: 202106
  3. MORPHINE [Concomitant]
     Active Substance: MORPHINE
     Dosage: SLOW RELEASE
  4. VITAMINS NOS [Concomitant]
     Active Substance: VITAMINS
     Dosage: FORMULATION: PILL
     Route: 048
  5. OXYCODONE [Concomitant]
     Active Substance: OXYCODONE

REACTIONS (7)
  - Malignant neoplasm progression [Fatal]
  - Lung carcinoma cell type unspecified recurrent [Unknown]
  - Neuropathy peripheral [Unknown]
  - Haemorrhage [Unknown]
  - Swelling [Unknown]
  - Fluid retention [Unknown]
  - Adverse drug reaction [Unknown]

NARRATIVE: CASE EVENT DATE: 20191101
